FAERS Safety Report 7112342-X (Version None)
Quarter: 2010Q4

REPORT INFORMATION
  Report Type: 
  Country: None (occurrence: None)
  Receive Date: 20101119
  Receipt Date: 20100809
  Transmission Date: 20110411
  Serious: No
  Sender: FDA-Public Use
  Company Number: A0874618A

PATIENT
  Sex: Male

DRUGS (1)
  1. AVODART [Suspect]
     Route: 048
     Dates: start: 20050101, end: 20100806

REACTIONS (4)
  - FOOD POISONING [None]
  - INCORRECT STORAGE OF DRUG [None]
  - MALAISE [None]
  - VOMITING [None]
